FAERS Safety Report 4673340-9 (Version None)
Quarter: 2005Q2

REPORT INFORMATION
  Report Type: 
  Country: None (occurrence: None)
  Receive Date: 20050523
  Receipt Date: 20050513
  Transmission Date: 20051028
  Serious: Yes (Life-Threatening, Hospitalization, Disabling)
  Sender: FDA-Public Use
  Company Number: 02100-USA-05-0034

PATIENT
  Age: 70 Year
  Sex: Male

DRUGS (10)
  1. CILOSTAZOL [Suspect]
     Indication: CEREBRAL INFARCTION
     Dosage: 100 MG BID ORAL
     Route: 048
     Dates: start: 20030428, end: 20050101
  2. OLMETEC  /GFR/ [Suspect]
     Dosage: 20 MG QD ORAL
     Route: 048
     Dates: start: 20040909, end: 20050101
  3. STARSIS [Suspect]
     Dosage: 90 MG TID ORAL
     Route: 048
     Dates: start: 20021004, end: 20050101
  4. BASEN [Suspect]
     Indication: CEREBRAL INFARCTION
     Dosage: 0.3 MG TID ORAL
     Route: 048
     Dates: start: 20021004, end: 20051201
  5. LIVALO [Concomitant]
  6. VOGLIBOSE [Concomitant]
  7. NATEGLINIDE [Concomitant]
  8. CHOUTOUSAN [Concomitant]
  9. GOSYAZINKIGAN [Concomitant]
  10. TELMISARTAN [Concomitant]

REACTIONS (5)
  - CEREBRAL INFARCTION [None]
  - DISEASE PROGRESSION [None]
  - FALL [None]
  - HYPOGLYCAEMIA [None]
  - LOSS OF CONSCIOUSNESS [None]
